FAERS Safety Report 21235888 (Version 1)
Quarter: 2022Q3

REPORT INFORMATION
  Report Type: Report from Study
  Country: JP (occurrence: JP)
  Receive Date: 20220821
  Receipt Date: 20220821
  Transmission Date: 20221026
  Serious: Yes (Hospitalization, Other)
  Sender: FDA-Public Use
  Company Number: JP-SA-2022SA337943

PATIENT
  Age: 80 Year
  Sex: Male
  Weight: 36.6 kg

DRUGS (5)
  1. ALEMTUZUMAB [Suspect]
     Active Substance: ALEMTUZUMAB
     Indication: Chronic lymphocytic leukaemia
     Dosage: 3 MG PER DOSE
     Route: 041
     Dates: start: 20170403, end: 20170403
  2. ALEMTUZUMAB [Suspect]
     Active Substance: ALEMTUZUMAB
     Dosage: 3 MG
     Route: 041
     Dates: start: 20170404, end: 20170404
  3. ALEMTUZUMAB [Suspect]
     Active Substance: ALEMTUZUMAB
     Dosage: 10 MG PER DOSE
     Route: 041
     Dates: start: 20170405, end: 20170405
  4. ALEMTUZUMAB [Suspect]
     Active Substance: ALEMTUZUMAB
     Dosage: 10 MG PER DOSE
     Route: 041
     Dates: start: 20170406, end: 20170406
  5. SAXIZON [Concomitant]
     Active Substance: HYDROCORTISONE SODIUM SUCCINATE
     Indication: Infection prophylaxis
     Dosage: 100 MG, QD
     Route: 042
     Dates: start: 20170403, end: 20170408

REACTIONS (2)
  - Febrile neutropenia [Recovering/Resolving]
  - Pyrexia [Recovering/Resolving]

NARRATIVE: CASE EVENT DATE: 20170403
